FAERS Safety Report 8890358 (Version 1)
Quarter: 2012Q4

REPORT INFORMATION
  Report Type: 
  Country: BR (occurrence: BR)
  Receive Date: 20121107
  Receipt Date: 20121107
  Transmission Date: 20130627
  Serious: Yes (Other)
  Sender: FDA-Public Use
  Company Number: PHHY2009BR04183

PATIENT
  Age: 66 Year
  Sex: Male
  Weight: 54 kg

DRUGS (8)
  1. SANDOSTATIN [Suspect]
     Indication: HEPATIC NEOPLASM
     Dosage: 0.1 mg, TID
     Route: 058
     Dates: start: 199502
  2. SANDOSTATIN [Suspect]
     Dosage: 0.1 mg, BID
     Route: 058
     Dates: start: 199502
  3. SANDOSTATIN LAR [Suspect]
     Indication: HEPATIC NEOPLASM
     Dosage: 20 mg monthly
  4. CODEINA [Concomitant]
     Dosage: 1 DF 4 to 4 hours
  5. METHADONE [Concomitant]
     Dosage: 1 DF 8 to 8 hours
  6. DIPIRONE [Concomitant]
     Dosage: 1 DF 4 to 4 hours
  7. OSTEOFIX [Concomitant]
     Dosage: 2 DF a day
  8. CLONAZEPAM [Concomitant]

REACTIONS (10)
  - Weight decreased [Unknown]
  - Pain [Unknown]
  - Skin irritation [Unknown]
  - Erythema [Unknown]
  - Malaise [Unknown]
  - Incorrect dose administered [Unknown]
  - Dyspnoea [Unknown]
  - Dizziness [Unknown]
  - Palpitations [Unknown]
  - Nausea [Unknown]
